FAERS Safety Report 8971285 (Version 1)
Quarter: 2012Q4

REPORT INFORMATION
  Report Type: 
  Country: US (occurrence: US)
  Receive Date: 20121218
  Receipt Date: 20121218
  Transmission Date: 20130627
  Serious: No
  Sender: FDA-Public Use
  Company Number: US-TEVA-373684USA

PATIENT
  Sex: Male
  Weight: 108.96 kg

DRUGS (7)
  1. NUVIGIL [Suspect]
     Indication: SLEEP DISORDER
     Dosage: 150 Milligram Daily;
     Route: 048
     Dates: start: 201209, end: 201209
  2. NUVIGIL [Suspect]
     Dosage: 1/2 tablet daily
     Route: 048
  3. METFORMIN [Concomitant]
     Dosage: 2 tablets per dose
     Route: 048
  4. LISINOPRIL [Concomitant]
     Dosage: 10 Milligram Daily;
     Route: 048
  5. PRAVASTATIN [Concomitant]
     Indication: BLOOD CHOLESTEROL
     Dosage: 20 Milligram Daily;
     Route: 048
  6. CARVEDILOL [Concomitant]
     Indication: CHEST PAIN
     Dosage: 3.125 Milligram Daily;
     Route: 048
  7. CARVEDILOL [Concomitant]
     Indication: BLOOD PRESSURE

REACTIONS (4)
  - Drug effect increased [Recovered/Resolved]
  - Chest pain [Recovered/Resolved]
  - Stress [Unknown]
  - Off label use [Unknown]
